FAERS Safety Report 19469250 (Version 1)
Quarter: 2021Q2

REPORT INFORMATION
  Report Type: Spontaneous
  Country: JP (occurrence: JP)
  Receive Date: 20210628
  Receipt Date: 20210628
  Transmission Date: 20210717
  Serious: Yes (Hospitalization)
  Sender: FDA-Public Use
  Company Number: JP-ALLERGAN-2123915US

PATIENT
  Sex: Male
  Weight: 116 kg

DRUGS (2)
  1. DIAZEPAM. [Concomitant]
     Active Substance: DIAZEPAM
  2. ASENAPINE MALEATE ? BP [Suspect]
     Active Substance: ASENAPINE MALEATE
     Indication: RESTLESSNESS
     Dosage: UNK
     Route: 060

REACTIONS (2)
  - Hypoxic-ischaemic encephalopathy [Recovered/Resolved]
  - Off label use [Unknown]
